FAERS Safety Report 6792391-1 (Version None)
Quarter: 2010Q2

REPORT INFORMATION
  Report Type: 
  Country: None (occurrence: None)
  Receive Date: 20100624
  Receipt Date: 20080728
  Transmission Date: 20101027
  Serious: Yes (Other)
  Sender: FDA-Public Use
  Company Number: US-PFIZER INC-2008063122

PATIENT
  Sex: Female

DRUGS (5)
  1. GEODON [Suspect]
     Indication: ANXIETY
     Route: 048
     Dates: start: 20030101, end: 20080609
  2. PAXIL [Concomitant]
  3. TRAZODONE HYDROCHLORIDE [Concomitant]
  4. AMBIEN [Concomitant]
  5. ATIVAN [Concomitant]

REACTIONS (1)
  - TARDIVE DYSKINESIA [None]
